APPROVED DRUG PRODUCT: CORDARONE
Active Ingredient: AMIODARONE HYDROCHLORIDE
Strength: 50MG/ML **Federal Register determination that product was not discontinued or withdrawn for safety or effectiveness reasons**
Dosage Form/Route: INJECTABLE;INJECTION
Application: N020377 | Product #001
Applicant: WYETH PHARMACEUTICALS INC
Approved: Aug 3, 1995 | RLD: Yes | RS: No | Type: DISCN